FAERS Safety Report 8941701 (Version 1)
Quarter: 2012Q4

REPORT INFORMATION
  Report Type: 
  Country: PL (occurrence: PL)
  Receive Date: 20121203
  Receipt Date: 20121203
  Transmission Date: 20130627
  Serious: Yes (Death, Other)
  Sender: FDA-Public Use
  Company Number: PHHY2012PL109310

PATIENT
  Age: 57 Year
  Sex: Female

DRUGS (17)
  1. NEORAL [Suspect]
     Dosage: 175 mg, BID
  2. AZATHIOPRINE [Concomitant]
     Dosage: 75 mg, UNK
  3. ENCORTON [Concomitant]
     Dosage: 5 mg, every second day
  4. CELLCEPT [Concomitant]
     Dosage: UNK
     Dates: start: 20050604
  5. RANIGAST [Concomitant]
     Dosage: UNK
     Dates: end: 200501
  6. PROTON PUMP INHIBITORS/ OMEPRAZOLE/ PANTOPRAZOLE [Concomitant]
     Dosage: UNK
     Dates: start: 200804
  7. CONCOR COR [Concomitant]
  8. TRITACE [Concomitant]
  9. LORISTA [Concomitant]
  10. INDAPEN [Concomitant]
  11. POLFILIN [Concomitant]
  12. TARDYFERON FOL [Concomitant]
  13. OSTOLEK [Concomitant]
  14. HISTIMERCK [Concomitant]
  15. ACARD [Concomitant]
  16. HUMULIN R [Concomitant]
  17. NEO RECORMON [Concomitant]
     Dosage: 2000 U, per week
     Dates: start: 200910

REACTIONS (8)
  - Death [Fatal]
  - Diabetic foot [Unknown]
  - Electrolyte depletion [Unknown]
  - Squamous cell carcinoma [Unknown]
  - Skin lesion [Unknown]
  - Skin ulcer [Unknown]
  - Complications of transplanted kidney [Unknown]
  - Dehydration [Unknown]
